FAERS Safety Report 10377394 (Version 1)
Quarter: 2014Q3

REPORT INFORMATION
  Report Type: Spontaneous
  Country: US (occurrence: None)
  Receive Date: 20140811
  Receipt Date: 20140811
  Transmission Date: 20150326
  Serious: Yes (Other)
  Sender: FDA-Public Use
  Company Number: None

PATIENT
  Age: 76 Year
  Sex: Male
  Weight: 81.65 kg

DRUGS (6)
  1. AMIODARONE [Concomitant]
     Active Substance: AMIODARONE
  2. COLCRYS [Concomitant]
     Active Substance: COLCHICINE
  3. ALLOPURINOL. [Concomitant]
     Active Substance: ALLOPURINOL
  4. XARELTO [Suspect]
     Active Substance: RIVAROXABAN
     Indication: ATRIAL FIBRILLATION
     Dosage: 1 TABLET, QD, ORAL
     Route: 048
     Dates: start: 20120327, end: 20140701
  5. XARELTO [Suspect]
     Active Substance: RIVAROXABAN
     Indication: ATRIAL FLUTTER
     Dosage: 1 TABLET, QD, ORAL
     Route: 048
     Dates: start: 20120327, end: 20140701
  6. PRILOSEC [Concomitant]
     Active Substance: OMEPRAZOLE MAGNESIUM

REACTIONS (3)
  - Tremor [None]
  - Intracranial aneurysm [None]
  - Ataxia [None]

NARRATIVE: CASE EVENT DATE: 20130919
